FAERS Safety Report 13176582 (Version 2)
Quarter: 2017Q1

REPORT INFORMATION
  Report Type: Report from Study
  Country: US (occurrence: US)
  Receive Date: 20170201
  Receipt Date: 20170227
  Transmission Date: 20170428
  Serious: Yes (Hospitalization, Other)
  Sender: FDA-Public Use
  Company Number: US-GILEAD-2017-0253562

PATIENT
  Age: 75 Year
  Sex: Male

DRUGS (3)
  1. IDELALISIB [Suspect]
     Active Substance: IDELALISIB
     Indication: CHRONIC LYMPHOCYTIC LEUKAEMIA
     Dosage: 100 MG, BID
     Route: 048
     Dates: start: 20160829, end: 20161223
  2. IDELALISIB [Suspect]
     Active Substance: IDELALISIB
     Dosage: 100 MG, BID
     Route: 048
     Dates: start: 20150312, end: 2016
  3. IDELALISIB [Suspect]
     Active Substance: IDELALISIB
     Dosage: 100 MG, BID
     Route: 048
     Dates: start: 20170211

REACTIONS (10)
  - Fatigue [Not Recovered/Not Resolved]
  - Malaise [Unknown]
  - Productive cough [Not Recovered/Not Resolved]
  - Sputum discoloured [Unknown]
  - Pneumonia [Recovering/Resolving]
  - Constipation [Unknown]
  - Abdominal pain upper [Unknown]
  - Nausea [Unknown]
  - Chills [Unknown]
  - Diarrhoea [Unknown]

NARRATIVE: CASE EVENT DATE: 201612
